FAERS Safety Report 24987914 (Version 1)
Quarter: 2025Q1

REPORT INFORMATION
  Report Type: Spontaneous
  Country: US (occurrence: US)
  Receive Date: 20250219
  Receipt Date: 20250219
  Transmission Date: 20250409
  Serious: No
  Sender: ROCHE
  Company Number: US-ROCHE-10000206504

PATIENT
  Age: 53 Year
  Sex: Female
  Weight: 65.32 kg

DRUGS (3)
  1. XOLAIR [Suspect]
     Active Substance: OMALIZUMAB
     Indication: Urticaria
     Route: 030
     Dates: start: 202412
  2. ALLERTEC [CETIRIZINE] [Concomitant]
     Indication: Urticaria
     Dosage: MORE DOSAGE INFORMATION IS IN THE MORNING.
     Route: 048
  3. CLARITIN [Concomitant]
     Active Substance: LORATADINE
     Indication: Urticaria
     Dosage: MORE DOSAGE INFORMATION AT NIGHT.
     Route: 048

REACTIONS (4)
  - Off label use [Unknown]
  - Urticaria [Not Recovered/Not Resolved]
  - Poor quality sleep [Not Recovered/Not Resolved]
  - Drug ineffective [Unknown]

NARRATIVE: CASE EVENT DATE: 20241201
